FAERS Safety Report 8366500-7 (Version None)
Quarter: 2012Q1

REPORT INFORMATION
  Report Type: 
  Country: None (occurrence: None)
  Receive Date: 20120323
  Receipt Date: 20110812
  Transmission Date: 20120608
  Serious: Yes (Hospitalization, Disabling)
  Sender: FDA-Public Use
  Company Number: 163-21880-11041110

PATIENT

DRUGS (18)
  1. AMITRIPTYLINE HCL [Concomitant]
  2. ASPIRIN [Concomitant]
  3. NTG(GLYCERYL TRINITRATE)(UNKNOWN) [Concomitant]
  4. PREDNISONE [Concomitant]
  5. LYRICA(PREGABALIN)(UNKNOWN) [Concomitant]
  6. KCL(POTASSIUM CHLORIDE)(UNKNOWN) [Concomitant]
  7. TYLENOL EXTRA STRENGTH(PARACETAMOL)(500 MILLIGRAM, TABLETS) [Concomitant]
  8. VICODIN [Concomitant]
  9. ZEGERID(OMEPRAZOLE)(UNKNOWN) [Concomitant]
  10. FUROSEMIDE [Concomitant]
  11. REVLIMID [Suspect]
     Indication: MYELOFIBROSIS
     Dosage: 5 MG, DAILY FOR 21 OUT OF 28 DAYS, PO, 5 MG, DAY 1-21, PO
     Route: 048
     Dates: start: 20101029
  12. REVLIMID [Suspect]
     Indication: MYELOFIBROSIS
     Dosage: 5 MG, DAILY FOR 21 OUT OF 28 DAYS, PO, 5 MG, DAY 1-21, PO
     Route: 048
     Dates: start: 20111210
  13. REVLIMID [Suspect]
     Indication: MYELOFIBROSIS
     Dosage: 5 MG, DAILY FOR 21 OUT OF 28 DAYS, PO, 5 MG, DAY 1-21, PO
     Route: 048
     Dates: start: 20110112, end: 20110124
  14. PACKED RED BLOOD CELL(BLOOD CELLS, PACKED HUMAN)(UNKNOWN) [Concomitant]
  15. CLORAZEPATE(CLORAZEPATE DIPOTASSIUM)(UNKNOWN) [Concomitant]
  16. SIMVASTATIN [Concomitant]
  17. SYNTHROID [Concomitant]
  18. PLATELET(DIPYRIDAMOLE)(UNKNOWN) [Concomitant]

REACTIONS (3)
  - INTERSTITIAL LUNG DISEASE [None]
  - COR PULMONALE [None]
  - THROMBOCYTOPENIA [None]
